FAERS Safety Report 22537953 (Version 2)
Quarter: 2023Q2

REPORT INFORMATION
  Report Type: Spontaneous
  Country: ES (occurrence: ES)
  Receive Date: 20230608
  Receipt Date: 20230619
  Transmission Date: 20230722
  Serious: Yes (Life-Threatening, Hospitalization, Disabling)
  Sender: FDA-Public Use
  Company Number: ES-BoehringerIngelheim-2023-BI-241990

PATIENT
  Age: 46 Year
  Sex: Male
  Weight: 80 kg

DRUGS (1)
  1. ALTEPLASE [Suspect]
     Active Substance: ALTEPLASE
     Indication: Ischaemic stroke
     Dosage: 0.9MG/KG OF WEIGHT, ADMINISTERING 10% AS A BOLUS, ADJUSTED FOR 80 KG, DOSE OF 72 MG (INCL. BOLUS OF
     Route: 065
     Dates: start: 20230507, end: 20230507

REACTIONS (2)
  - Cerebral haemorrhage [Not Recovered/Not Resolved]
  - Brain injury [Not Recovered/Not Resolved]

NARRATIVE: CASE EVENT DATE: 20230507
